FAERS Safety Report 18107602 (Version 1)
Quarter: 2020Q3

REPORT INFORMATION
  Report Type: Spontaneous
  Country: EG (occurrence: EG)
  Receive Date: 20200804
  Receipt Date: 20200804
  Transmission Date: 20201103
  Serious: Yes (Death, Life-Threatening, Other)
  Sender: FDA-Public Use
  Company Number: EG-PFIZER INC-2020286859

PATIENT
  Age: 71 Year
  Sex: Female

DRUGS (14)
  1. RINGER [CALCIUM CHLORIDE\MAGNESIUM CHLORIDE\POTASSIUM CHLORIDE\SODIUM ACETATE] [Suspect]
     Active Substance: CALCIUM CHLORIDE\MAGNESIUM CHLORIDE\POTASSIUM CHLORIDE\SODIUM ACETATE
     Indication: FLUID REPLACEMENT
     Dosage: UNK
     Route: 041
     Dates: start: 202005, end: 202005
  2. HYDROQUINE [Suspect]
     Active Substance: HYDROXYCHLOROQUINE SULFATE
     Dosage: 200 MG, EVERY 12 HRS FOR THE NEXT 12 DAYS
     Route: 048
     Dates: start: 202005
  3. CLEXANE [Concomitant]
     Active Substance: ENOXAPARIN SODIUM
     Indication: THROMBOSIS PROPHYLAXIS
     Dosage: 60 IU, CYCLIC (1 PER 12HRS)
     Route: 058
     Dates: start: 202005, end: 202005
  4. DEXTROSE 5% [Suspect]
     Active Substance: DEXTROSE
     Dosage: UNK
     Route: 041
     Dates: start: 202005, end: 202005
  5. SOLU?CORTEF [Suspect]
     Active Substance: HYDROCORTISONE SODIUM SUCCINATE
     Indication: COVID-19
     Dosage: 50 MG, CYCLIC (1 PER 6 HOUR)
     Route: 042
     Dates: start: 202005, end: 202005
  6. HYDROQUINE [Suspect]
     Active Substance: HYDROXYCHLOROQUINE SULFATE
     Indication: COVID-19
     Dosage: 400 MG, EVERY 12 HRS FOR 1 DAY
     Route: 048
     Dates: start: 202005
  7. ZINC. [Concomitant]
     Active Substance: ZINC
     Dosage: UNK, AS NEEDED
     Route: 048
     Dates: start: 202005, end: 202005
  8. MAREVAN [Concomitant]
     Active Substance: WARFARIN SODIUM
     Indication: THROMBOSIS PROPHYLAXIS
     Dosage: 3 MG, 1X/DAY
     Route: 048
     Dates: start: 202005, end: 202005
  9. SALINE [Suspect]
     Active Substance: SODIUM CHLORIDE
     Indication: FLUID REPLACEMENT
     Dosage: UNK
     Route: 041
     Dates: start: 202005, end: 202005
  10. OSELTAMIVIR [OSELTAMIVIR PHOSPHATE] [Concomitant]
     Indication: COVID-19
     Dosage: 75 MG, 1X/DAY
     Route: 048
     Dates: start: 202005
  11. PARACETAMOL [Concomitant]
     Active Substance: ACETAMINOPHEN
     Indication: PYREXIA
     Dosage: UNK, AS NEEDED
     Dates: start: 202004, end: 202005
  12. VITAMIN C ACID [Concomitant]
     Active Substance: ASCORBIC ACID
     Indication: COVID-19
     Dosage: UNK, AS NEEDED
     Route: 048
     Dates: start: 202005, end: 202005
  13. ZITHROMAX [Suspect]
     Active Substance: AZITHROMYCIN DIHYDRATE
     Indication: COVID-19
     Dosage: 500 MG, 1X/DAY (EVERY 24 HRS)
     Route: 048
     Dates: start: 202005
  14. SOLU?MEDROL [Suspect]
     Active Substance: METHYLPREDNISOLONE SODIUM SUCCINATE
     Indication: COVID-19
     Dosage: UNK

REACTIONS (6)
  - Myocardial ischaemia [Unknown]
  - Cardiac failure [Not Recovered/Not Resolved]
  - Septic shock [Recovered/Resolved]
  - Product use in unapproved indication [Recovered/Resolved]
  - Off label use [Recovered/Resolved]
  - Pulmonary embolism [Fatal]

NARRATIVE: CASE EVENT DATE: 202005
